FAERS Safety Report 8579598 (Version 2)
Quarter: 2012Q4

REPORT INFORMATION
  Report Type: 
  Country: US (occurrence: US)
  Receive Date: 20120525
  Receipt Date: 20120831
  Transmission Date: 20130627
  Serious: Yes (Other)
  Sender: FDA-Public Use
  Company Number: US-PFIZER INC-2012122877

PATIENT
  Age: 46 Year
  Sex: Female
  Weight: 62.13 kg

DRUGS (5)
  1. NEURONTIN [Suspect]
     Indication: FIBROMYALGIA
     Dosage: 600 mg, Unk
     Route: 048
  2. NEURONTIN [Suspect]
     Indication: HEADACHE
     Dosage: 1200 mg, 3x/day
     Route: 048
  3. KLONOPIN [Concomitant]
     Indication: ANXIETY
     Dosage: 2 mg, 2x/day
  4. ASPIRIN [Concomitant]
     Indication: CARDIAC DISORDER
     Dosage: 81 mg, UNK
  5. MULTIVITAMINS [Concomitant]
     Dosage: UNK

REACTIONS (6)
  - Hypokinesia [Not Recovered/Not Resolved]
  - Post concussion syndrome [Unknown]
  - Blood cholesterol increased [Recovering/Resolving]
  - Malaise [Not Recovered/Not Resolved]
  - Stress [Unknown]
  - Weight decreased [Unknown]
